FAERS Safety Report 6556367-1 (Version None)
Quarter: 2010Q1

REPORT INFORMATION
  Report Type: 
  Country: None (occurrence: None)
  Receive Date: 20100128
  Receipt Date: 20100121
  Transmission Date: 20100710
  Serious: Yes (Other)
  Sender: FDA-Public Use
  Company Number: US-SANOFI-AVENTIS-2010SA004894

PATIENT
  Age: 69 Year
  Sex: Male

DRUGS (5)
  1. MULTAQ [Suspect]
     Indication: ATRIAL FIBRILLATION
     Route: 048
     Dates: start: 20100117
  2. ALTACE [Concomitant]
     Route: 065
  3. ZETIA [Concomitant]
     Route: 065
  4. CARDIZEM [Concomitant]
     Route: 065
  5. COUMADIN [Concomitant]
     Dosage: 7.5MG MON, WED, FRI, SAT; 5MG TUES, THURS, SUN
     Route: 048

REACTIONS (1)
  - ATRIAL FIBRILLATION [None]
